FAERS Safety Report 16980455 (Version 1)
Quarter: 2019Q4

REPORT INFORMATION
  Report Type: Spontaneous
  Country: US (occurrence: US)
  Receive Date: 20191031
  Receipt Date: 20191031
  Transmission Date: 20200122
  Serious: No
  Sender: FDA-Public Use
  Company Number: US-TEVA-2019-US-1129803

PATIENT
  Sex: Female

DRUGS (1)
  1. TEVA BUPROPION HYDROCHLORIDE EXTENDED RELEASE [Suspect]
     Active Substance: BUPROPION HYDROCHLORIDE
     Indication: DEPRESSION
     Dosage: DOSE STRENGTH:  300
     Dates: start: 20190816

REACTIONS (4)
  - Abdominal pain upper [Recovered/Resolved]
  - Product residue present [Recovered/Resolved]
  - Product use in unapproved indication [Unknown]
  - Product substitution issue [Unknown]

NARRATIVE: CASE EVENT DATE: 20190816
